FAERS Safety Report 10196806 (Version 1)
Quarter: 2014Q2

REPORT INFORMATION
  Report Type: Spontaneous
  Country: FR (occurrence: None)
  Receive Date: 20140522
  Receipt Date: 20140522
  Transmission Date: 20141212
  Serious: Yes (Hospitalization, Other)
  Sender: FDA-Public Use
  Company Number: 2014132845

PATIENT
  Age: 63 Year
  Sex: Male

DRUGS (1)
  1. FRAGMINE (DALTEPARIN SODIUM) SOLUTION FOR INJECTION [Suspect]
     Dosage: 1X/DAY
     Route: 058
     Dates: start: 20140207, end: 20140212

REACTIONS (4)
  - Diarrhoea [None]
  - General physical health deterioration [None]
  - Thrombocytopenia [None]
  - Condition aggravated [None]
